FAERS Safety Report 16075432 (Version 1)
Quarter: 2019Q1

REPORT INFORMATION
  Report Type: Spontaneous
  Country: IR (occurrence: IR)
  Receive Date: 20190315
  Receipt Date: 20190315
  Transmission Date: 20190418
  Serious: Yes (Hospitalization, Other)
  Sender: FDA-Public Use
  Company Number: IR-CPL-000934

PATIENT
  Age: 38 Year
  Sex: Female

DRUGS (2)
  1. HYDRALAZINE/HYDRALAZINE HYDROCHLORIDE [Suspect]
     Active Substance: HYDRALAZINE HYDROCHLORIDE
     Dosage: 30 X 25 MG TABLETS, STRENGTH: 30 MG
  2. CLONAZEPAM. [Suspect]
     Active Substance: CLONAZEPAM
     Dosage: 10 X 1 MG TABLETS, STRENGTH: 10 MG

REACTIONS (6)
  - Haemodynamic instability [Recovered/Resolved]
  - Suicide attempt [Unknown]
  - Mitral valve incompetence [Recovered/Resolved]
  - Shock [Recovered/Resolved]
  - Overdose [Unknown]
  - Acute myocardial infarction [Recovered/Resolved]
